FAERS Safety Report 7572600-1 (Version None)
Quarter: 2011Q2

REPORT INFORMATION
  Report Type: 
  Country: None (occurrence: None)
  Receive Date: 20110627
  Receipt Date: 20110616
  Transmission Date: 20111010
  Serious: No
  Sender: FDA-Public Use
  Company Number: US-BIOGENIDEC-2011BI022282

PATIENT
  Sex: Female

DRUGS (1)
  1. TYSABRI [Suspect]
     Indication: MULTIPLE SCLEROSIS
     Route: 042
     Dates: start: 20090513

REACTIONS (8)
  - VISION BLURRED [None]
  - MIGRAINE [None]
  - NAUSEA [None]
  - SLEEP DISORDER [None]
  - MEMORY IMPAIRMENT [None]
  - ABNORMAL LOSS OF WEIGHT [None]
  - DECREASED APPETITE [None]
  - BONE PAIN [None]
